FAERS Safety Report 7221581-9 (Version None)
Quarter: 2011Q1

REPORT INFORMATION
  Report Type: 
  Country: None (occurrence: None)
  Receive Date: 20110112
  Receipt Date: 20110111
  Transmission Date: 20110831
  Serious: Yes (Other)
  Sender: FDA-Public Use
  Company Number: ZA-PFIZER INC-2010179530

PATIENT
  Age: 2 Year
  Sex: Male

DRUGS (1)
  1. CEFPODOXIME PROXETIL [Suspect]
     Indication: BRONCHITIS
     Dosage: 15 ML DAILY
     Route: 048

REACTIONS (4)
  - MALAISE [None]
  - DEHYDRATION [None]
  - VOMITING [None]
  - OVERDOSE [None]
